FAERS Safety Report 9850142 (Version 2)
Quarter: 2014Q1

REPORT INFORMATION
  Report Type: Spontaneous
  Country: NL (occurrence: NL)
  Receive Date: 20140128
  Receipt Date: 20140128
  Transmission Date: 20141002
  Serious: Yes (Other)
  Sender: FDA-Public Use
  Company Number: NL-PFIZER INC-2014022606

PATIENT
  Age: 41 Year
  Sex: Male
  Weight: 79 kg

DRUGS (4)
  1. PANTOPRAZOLE [Suspect]
     Dosage: 1 TIME PER DAY 3 PIECE (S)(ANTI-PSYCHOTICS 1X PDAG PANTO ES MULTIPLE TIMES)
     Route: 048
     Dates: start: 20050402
  2. ORAP [Suspect]
     Dosage: 1 TIME PER DAY 3 PIECE (S)(ANTI-PSYCHOTICS 1X PDAG PANTO ES MULTIPLE TIMES)
     Route: 048
     Dates: start: 20050402
  3. ESOMEPRAZOLE [Suspect]
     Dosage: 1 TIME PER DAY 3 PIECE (S)(ANTI-PSYCHOTICS 1X PDAG PANTO ES MULTIPLE TIMES)
     Route: 048
     Dates: start: 20050402
  4. ABILIFY [Suspect]
     Dosage: 1 TIME PER DAY 3 PIECE (S)(ANTI-PSYCHOTICS 1X PDAG PANTO ES MULTIPLE TIMES)
     Route: 048
     Dates: start: 20050402

REACTIONS (2)
  - Renal impairment [Recovered/Resolved]
  - Back pain [Not Recovered/Not Resolved]
